FAERS Safety Report 13695641 (Version 1)
Quarter: 2017Q2

REPORT INFORMATION
  Report Type: Spontaneous
  Country: US (occurrence: US)
  Receive Date: 20170627
  Receipt Date: 20170627
  Transmission Date: 20170830
  Serious: Yes (Hospitalization, Other)
  Sender: FDA-Public Use
  Company Number: US-MYLANLABS-2017M1038086

PATIENT

DRUGS (2)
  1. AMITRIPTYLINE [Suspect]
     Active Substance: AMITRIPTYLINE
     Indication: PRODUCT USED FOR UNKNOWN INDICATION
     Route: 065
  2. CYCLOBENZAPRINE. [Suspect]
     Active Substance: CYCLOBENZAPRINE
     Indication: PRODUCT USED FOR UNKNOWN INDICATION
     Route: 065

REACTIONS (9)
  - Intentional overdose [Recovering/Resolving]
  - Depressed level of consciousness [Recovering/Resolving]
  - Dry skin [Recovering/Resolving]
  - Unresponsive to stimuli [Recovering/Resolving]
  - Electrocardiogram QRS complex prolonged [Recovering/Resolving]
  - Electrocardiogram abnormal [Recovering/Resolving]
  - Suicide attempt [Recovering/Resolving]
  - QRS axis abnormal [Recovering/Resolving]
  - Sinus tachycardia [Recovering/Resolving]
